FAERS Safety Report 9430277 (Version 1)
Quarter: 2013Q3

REPORT INFORMATION
  Report Type: Spontaneous
  Country: US (occurrence: US)
  Receive Date: 20130730
  Receipt Date: 20130730
  Transmission Date: 20140515
  Serious: Yes (Hospitalization, Congenital Anomaly, Other)
  Sender: FDA-Public Use
  Company Number: US-GLAXOSMITHKLINE-A1016021D

PATIENT
  Sex: Female

DRUGS (1)
  1. LAMICTAL [Suspect]
     Indication: BIPOLAR I DISORDER
     Dosage: 200MG UNKNOWN
     Route: 064
     Dates: start: 20090109

REACTIONS (5)
  - Rhesus incompatibility [Unknown]
  - Vesicoureteral reflux surgery [Unknown]
  - Jaundice neonatal [Unknown]
  - Double ureter [Unknown]
  - Foetal exposure during pregnancy [Unknown]
